FAERS Safety Report 8122251-5 (Version None)
Quarter: 2012Q1

REPORT INFORMATION
  Report Type: 
  Country: None (occurrence: None)
  Receive Date: 20120208
  Receipt Date: 20120203
  Transmission Date: 20120608
  Serious: Yes (Other)
  Sender: FDA-Public Use
  Company Number: BR-BAYER-2012-011536

PATIENT
  Age: 22 Year
  Sex: Female

DRUGS (1)
  1. INTERFERON BETA-1B [Suspect]
     Route: 058

REACTIONS (12)
  - PAIN IN EXTREMITY [None]
  - MOBILITY DECREASED [None]
  - ANXIETY [None]
  - FEAR [None]
  - HYPOAESTHESIA [None]
  - MUSCLE RIGIDITY [None]
  - JOINT STIFFNESS [None]
  - DELIRIUM [None]
  - AMNESIA [None]
  - DEPRESSION [None]
  - PYREXIA [None]
  - PANIC REACTION [None]
